FAERS Safety Report 17316136 (Version 2)
Quarter: 2020Q1

REPORT INFORMATION
  Report Type: Spontaneous
  Country: IT (occurrence: IT)
  Receive Date: 20200124
  Receipt Date: 20200205
  Transmission Date: 20200409
  Serious: Yes (Other)
  Sender: FDA-Public Use
  Company Number: IT-EMD SERONO-9136478

PATIENT
  Age: 20 Year
  Sex: Female
  Weight: 72 kg

DRUGS (2)
  1. MAVENCLAD [Suspect]
     Active Substance: CLADRIBINE
     Dosage: SECOND WEEK THERAPY
     Dates: start: 20190801, end: 20190805
  2. MAVENCLAD [Suspect]
     Active Substance: CLADRIBINE
     Indication: MULTIPLE SCLEROSIS
     Dosage: FIRST WEEK THERAPY
     Dates: start: 20190701, end: 20190705

REACTIONS (4)
  - Supraventricular tachycardia [Unknown]
  - Unintended pregnancy [Recovered/Resolved]
  - Maternal exposure before pregnancy [Recovered/Resolved]
  - Abortion early [Recovered/Resolved]

NARRATIVE: CASE EVENT DATE: 201912
